FAERS Safety Report 6882199-0 (Version None)
Quarter: 2010Q3

REPORT INFORMATION
  Report Type: 
  Country: None (occurrence: None)
  Receive Date: 20100729
  Receipt Date: 20100722
  Transmission Date: 20110219
  Serious: Yes (Hospitalization)
  Sender: FDA-Public Use
  Company Number: US-SANOFI-AVENTIS-2010SA024828

PATIENT
  Age: 70 Year
  Sex: Female
  Weight: 60.45 kg

DRUGS (7)
  1. MULTAQ [Suspect]
     Indication: ATRIAL FIBRILLATION
     Route: 048
     Dates: start: 20100406, end: 20100408
  2. COUMADIN [Concomitant]
     Indication: ATRIAL FIBRILLATION
     Dates: start: 20070101
  3. ATENOLOL [Concomitant]
     Indication: HYPERTENSION
  4. NORVASC [Concomitant]
  5. ALTACE [Concomitant]
  6. DIGOXIN [Concomitant]
  7. SYNTHROID [Concomitant]
     Indication: HYPOTHYROIDISM

REACTIONS (4)
  - CARDIAC FAILURE [None]
  - HYPONATRAEMIA [None]
  - PLEURAL EFFUSION [None]
  - PULMONARY OEDEMA [None]
